FAERS Safety Report 4343969-6 (Version None)
Quarter: 2004Q2

REPORT INFORMATION
  Report Type: 
  Country: None (occurrence: None)
  Receive Date: 20040419
  Receipt Date: 20040407
  Transmission Date: 20050107
  Serious: Yes (Death, Hospitalization)
  Sender: FDA-Public Use
  Company Number: F01200301569

PATIENT
  Age: 64 Year
  Sex: Male

DRUGS (6)
  1. (OXALIPLATIN) - SOLUTION - 155 MG [Suspect]
     Indication: COLORECTAL CANCER METASTATIC
     Dosage: 155 MG Q2W, INTRAVENOUS NOS
     Route: 042
     Dates: start: 20031222, end: 20031222
  2. (FLUOROURACIL) - SOLUTION - 1098 MG [Suspect]
     Dosage: 2196 MG Q2W , INTRAVENOUS NOS
     Route: 042
     Dates: start: 20031222, end: 20031223
  3. (LEUCOVORIN) - SOLUTION - 366 MG [Suspect]
     Dosage: 366 MG Q2W , INTRAVENOUS NOS
     Route: 042
     Dates: start: 20031222, end: 20031223
  4. LOPERAMIDE HCL [Concomitant]
  5. NOVASEN (ACETYLSALICYLIC ACID) [Concomitant]
  6. ALTACE [Concomitant]

REACTIONS (12)
  - ANOXIC ENCEPHALOPATHY [None]
  - BLOOD POTASSIUM DECREASED [None]
  - CARDIO-RESPIRATORY ARREST [None]
  - DEHYDRATION [None]
  - DISSEMINATED INTRAVASCULAR COAGULATION [None]
  - FEBRILE NEUTROPENIA [None]
  - INTESTINAL ISCHAEMIA [None]
  - METABOLIC ACIDOSIS [None]
  - POST PROCEDURAL DIARRHOEA [None]
  - POST PROCEDURAL VOMITING [None]
  - RENAL FAILURE ACUTE [None]
  - TONIC CONVULSION [None]
